FAERS Safety Report 15949985 (Version 1)
Quarter: 2019Q1

REPORT INFORMATION
  Report Type: Spontaneous
  Country: US (occurrence: US)
  Receive Date: 20190212
  Receipt Date: 20190212
  Transmission Date: 20190417
  Serious: No
  Sender: FDA-Public Use
  Company Number: PHEH2019US006056

PATIENT
  Sex: Female

DRUGS (1)
  1. METHYLPREDNISOLONE SANDOZ [Suspect]
     Active Substance: METHYLPREDNISOLONE
     Indication: PRODUCT USED FOR UNKNOWN INDICATION
     Dosage: 4 MG, UNK
     Route: 048
     Dates: start: 20190124

REACTIONS (2)
  - Erythema [Unknown]
  - Hypersensitivity [Unknown]
